FAERS Safety Report 5244862-7 (Version None)
Quarter: 2007Q1

REPORT INFORMATION
  Report Type: 
  Country: None (occurrence: None)
  Receive Date: 20070221
  Receipt Date: 20070221
  Transmission Date: 20070707
  Serious: Yes (Hospitalization)
  Sender: FDA-Public Use
  Company Number: None

PATIENT
  Age: 57 Year
  Sex: Male

DRUGS (1)
  1. CETUXIMAB [Suspect]
     Indication: NON-SMALL CELL LUNG CANCER
     Dosage: 250 MG/M2, IV WKLY
     Route: 042
     Dates: start: 20070207

REACTIONS (9)
  - BONE DISORDER [None]
  - CONFUSIONAL STATE [None]
  - DELIRIUM [None]
  - DISEASE PROGRESSION [None]
  - HALLUCINATION, VISUAL [None]
  - HEADACHE [None]
  - MASS [None]
  - PAIN [None]
  - SPINAL DISORDER [None]
